FAERS Safety Report 8539664-X (Version None)
Quarter: 2012Q3

REPORT INFORMATION
  Report Type: 
  Country: None (occurrence: None)
  Receive Date: 20120726
  Receipt Date: 20110720
  Transmission Date: 20120928
  Serious: No
  Sender: FDA-Public Use
  Company Number: US-ASTRAZENECA-2009UW14107

PATIENT
  Age: 47 Year
  Sex: Male
  Weight: 108.9 kg

DRUGS (21)
  1. SEROQUEL [Suspect]
     Indication: SCHIZOPHRENIA
     Route: 048
     Dates: start: 20020201, end: 20080101
  2. RISPERDAL [Concomitant]
     Dates: start: 20080905, end: 20090130
  3. MIRTAZAPINE [Concomitant]
     Dates: start: 20080905, end: 20090130
  4. ENALAPRIL MALEATE [Concomitant]
     Dates: start: 20050330
  5. ATENOLOL [Concomitant]
     Dates: start: 20050320
  6. SEROQUEL [Suspect]
     Route: 048
     Dates: start: 20050325
  7. ABILIFY [Concomitant]
     Dates: start: 20070101
  8. HYDROCHLOROTHIAZIDE [Concomitant]
     Indication: HYPERTENSION
     Dosage: 25 OD
     Route: 048
     Dates: start: 20050320
  9. LOVASTATIN [Concomitant]
     Dosage: 40 QHS
  10. ZOLOFT [Concomitant]
     Dates: start: 20050325, end: 20050929
  11. BUPROPION HYDROCHLORIDE [Concomitant]
     Dates: start: 20051026
  12. PROCARDIA ER [Concomitant]
     Dosage: 30
  13. SEROQUEL [Suspect]
     Indication: BIPOLAR DISORDER
     Route: 048
     Dates: start: 20020201, end: 20080101
  14. ASPIRIN [Concomitant]
     Dates: start: 20050320
  15. STATIN [Concomitant]
     Dates: start: 20050320
  16. SEROQUEL [Suspect]
     Route: 048
     Dates: start: 20050325
  17. CLONIDINE [Concomitant]
     Dosage: 0.1 BD
     Dates: start: 20050320
  18. ALTACE [Concomitant]
     Dates: start: 20050320
  19. HALDOL [Concomitant]
  20. DEPAKOTE ER [Concomitant]
     Dates: start: 20050328
  21. GEODON [Concomitant]

REACTIONS (6)
  - TYPE 2 DIABETES MELLITUS [None]
  - HYPERLIPIDAEMIA [None]
  - BLOOD CHOLESTEROL INCREASED [None]
  - DYSLIPIDAEMIA [None]
  - OBESITY [None]
  - GLAUCOMA [None]
